FAERS Safety Report 7467010-1 (Version None)
Quarter: 2011Q2

REPORT INFORMATION
  Report Type: 
  Country: None (occurrence: None)
  Receive Date: 20110509
  Receipt Date: 20110504
  Transmission Date: 20111010
  Serious: Yes (Other)
  Sender: FDA-Public Use
  Company Number: FR-PFIZER INC-2011095413

PATIENT
  Age: 30 Year
  Sex: Male

DRUGS (2)
  1. VENTOLIN [Concomitant]
  2. PIPERACILLIN AND TAZOBACTAM [Suspect]
     Dosage: UNK

REACTIONS (2)
  - BRONCHOSPASM [None]
  - BLOOD PRESSURE DECREASED [None]
